FAERS Safety Report 14953723 (Version 3)
Quarter: 2018Q2

REPORT INFORMATION
  Report Type: Spontaneous
  Country: CN (occurrence: CN)
  Receive Date: 20180530
  Receipt Date: 20180621
  Transmission Date: 20180711
  Serious: Yes (Hospitalization, Other)
  Sender: FDA-Public Use
  Company Number: CN-BAYER-2018-096775

PATIENT
  Sex: Female

DRUGS (3)
  1. YAZ [Suspect]
     Active Substance: DROSPIRENONE\ETHINYL ESTRADIOL
     Indication: PROPHYLAXIS
     Dosage: 1 DF, QD,TOOK DRUG AT NOON
     Route: 048
     Dates: start: 20180519
  2. DIANE (CYPROTERONE ACETATE\ETHINYL ESTRADIOL) [Suspect]
     Active Substance: CYPROTERONE ACETATE\ETHINYL ESTRADIOL
     Dosage: UNK
     Route: 048
     Dates: start: 201804, end: 2018
  3. PAIN RELIEF NOS [Concomitant]
     Active Substance: CAMPHOR (SYNTHETIC)\LEVOMENTHOL\MENTHYL SALICYLATE OR CAMPHOR (SYNTHETIC)\MENTHOL\MENTHYL SALICYLATE OR MENTHOL\MENTHYL SALICYLATE

REACTIONS (23)
  - Headache [Recovering/Resolving]
  - Withdrawal bleed [None]
  - Abdominal pain [Recovering/Resolving]
  - Back pain [None]
  - Thrombosis [None]
  - Poor quality sleep [Recovering/Resolving]
  - Uterine polyp [None]
  - Dyspnoea [Recovering/Resolving]
  - Abdominal distension [None]
  - Insomnia [None]
  - Product use in unapproved indication [None]
  - Mobility decreased [Recovering/Resolving]
  - Myalgia [None]
  - Pain [None]
  - Nausea [Recovering/Resolving]
  - Throat tightness [Recovering/Resolving]
  - Metrorrhagia [Recovering/Resolving]
  - Nausea [None]
  - Pain in extremity [Recovering/Resolving]
  - Off label use [None]
  - Pain in extremity [None]
  - Dysmenorrhoea [None]
  - Headache [None]

NARRATIVE: CASE EVENT DATE: 2018
